FAERS Safety Report 8935427 (Version 1)
Quarter: 2012Q4

REPORT INFORMATION
  Report Type: Spontaneous
  Country: US (occurrence: None)
  Receive Date: 20121128
  Receipt Date: 20121128
  Transmission Date: 20130627
  Serious: Yes (Other)
  Sender: FDA-Public Use
  Company Number: None

PATIENT
  Sex: Female
  Weight: 76.2 kg

DRUGS (2)
  1. CIPROFLOXACIN [Suspect]
     Indication: INFLAMMATION
     Dosage: 500MG 2xD ORAL
     Route: 048
  2. METRONIDAZOLE 500 MG WATSON [Suspect]
     Route: 048

REACTIONS (19)
  - Infection [None]
  - Inflammatory bowel disease [None]
  - Oral candidiasis [None]
  - Abdominal distension [None]
  - Dizziness [None]
  - Panic attack [None]
  - Muscular weakness [None]
  - Diarrhoea [None]
  - Anxiety [None]
  - Memory impairment [None]
  - Attention deficit/hyperactivity disorder [None]
  - Pain in extremity [None]
  - Joint crepitation [None]
  - Vision blurred [None]
  - Back pain [None]
  - Hypoaesthesia [None]
  - Nausea [None]
  - Paranoia [None]
  - Tendon pain [None]
